FAERS Safety Report 9727826 (Version 1)
Quarter: 2013Q4

REPORT INFORMATION
  Report Type: Spontaneous
  Country: GB (occurrence: GB)
  Receive Date: 20131204
  Receipt Date: 20131204
  Transmission Date: 20140711
  Serious: Yes (Hospitalization)
  Sender: FDA-Public Use
  Company Number: GB-GLENMARK GENERICS INC.-2013GMK007705

PATIENT
  Age: 67 Year
  Sex: Male

DRUGS (3)
  1. ROPINIROLE [Suspect]
     Indication: PARKINSON^S DISEASE
     Dosage: 4 MG, QD
  2. CO-CARELDOPA [Suspect]
     Indication: PARKINSON^S DISEASE
     Dosage: 100/25MG, 5 TIMES A DAY
  3. SELEGILINE [Suspect]
     Indication: PARKINSON^S DISEASE
     Dosage: 10 MG, QD

REACTIONS (16)
  - Parkinsonism hyperpyrexia syndrome [Recovering/Resolving]
  - Confusional state [Recovering/Resolving]
  - Muscle rigidity [Recovering/Resolving]
  - Hallucination [Recovering/Resolving]
  - Body temperature increased [Recovering/Resolving]
  - Tremor [Recovering/Resolving]
  - Musculoskeletal stiffness [Recovering/Resolving]
  - Hyperhidrosis [Recovering/Resolving]
  - Tachypnoea [Recovering/Resolving]
  - Tachycardia [Recovering/Resolving]
  - Hallucination, visual [Recovering/Resolving]
  - Blood creatine phosphokinase increased [Recovering/Resolving]
  - Drug withdrawal syndrome [Recovering/Resolving]
  - Labile blood pressure [Unknown]
  - Circulatory collapse [Unknown]
  - Orthostatic hypotension [Unknown]
